FAERS Safety Report 6025356-8 (Version None)
Quarter: 2008Q4

REPORT INFORMATION
  Report Type: 
  Country: None (occurrence: None)
  Receive Date: 20081231
  Receipt Date: 20081225
  Transmission Date: 20090506
  Serious: Yes (Other)
  Sender: FDA-Public Use
  Company Number: JP-MERCK-0806USA09010

PATIENT
  Age: 83 Year
  Sex: Female

DRUGS (3)
  1. FOSAMAX [Suspect]
     Indication: OSTEOPOROSIS
     Route: 048
     Dates: start: 20010101
  2. ADALAT CC [Concomitant]
     Indication: HYPERTENSION
     Route: 048
  3. URSO 250 [Concomitant]
     Indication: CHOLECYSTITIS
     Route: 048

REACTIONS (1)
  - OSTEOMYELITIS [None]
